FAERS Safety Report 4383653-6 (Version None)
Quarter: 2004Q2

REPORT INFORMATION
  Report Type: 
  Country: None (occurrence: None)
  Receive Date: 20040623
  Receipt Date: 20031001
  Transmission Date: 20050107
  Serious: Yes (Death, Hospitalization, Other)
  Sender: FDA-Public Use
  Company Number: 347195

PATIENT
  Age: 16 Month
  Sex: Male
  Weight: 4.7 kg

DRUGS (9)
  1. ARTIST [Suspect]
     Indication: CARDIAC FAILURE
     Route: 048
     Dates: start: 19990415
  2. FUROSEMIDE [Concomitant]
     Route: 065
  3. SPIRONOLACTONE [Concomitant]
     Route: 065
  4. HYDROCHLOROTHIAZIDE [Concomitant]
     Route: 065
  5. DIGOXIN [Concomitant]
     Route: 065
  6. ENALAPRIL MALEATE [Concomitant]
     Route: 065
  7. FERROUS CITRATE [Concomitant]
     Route: 065
  8. ASPIRIN [Concomitant]
     Route: 065
  9. POTASSIUM ASPARTATE [Concomitant]
     Route: 065

REACTIONS (13)
  - BRONCHITIS [None]
  - CYANOSIS [None]
  - DRUG INEFFECTIVE [None]
  - FEELING COLD [None]
  - GENERAL PHYSICAL HEALTH DETERIORATION [None]
  - HYPERHIDROSIS [None]
  - HYPOGLYCAEMIA [None]
  - MARKEDLY REDUCED DIETARY INTAKE [None]
  - MUSCLE SPASMS [None]
  - NASOPHARYNGITIS [None]
  - RESPIRATORY FAILURE [None]
  - SHOCK [None]
  - TACHYPNOEA [None]
